FAERS Safety Report 5290679-7 (Version None)
Quarter: 2007Q2

REPORT INFORMATION
  Report Type: 
  Country: None (occurrence: None)
  Receive Date: 20070405
  Receipt Date: 20070405
  Transmission Date: 20071010
  Serious: Yes (Life-Threatening, Hospitalization)
  Sender: FDA-Public Use
  Company Number: None

PATIENT
  Age: 22 Year
  Sex: Female

DRUGS (4)
  1. LIDOCAINE [Suspect]
     Indication: INJECTION
     Dosage: 1% 5ML X 2 EPIDURAL
     Route: 008
     Dates: start: 20061220
  2. LIDOCAINE [Suspect]
     Indication: SCIATIC NERVE INJURY
     Dosage: 1% 5ML X 2 EPIDURAL
     Route: 008
     Dates: start: 20061220
  3. PREGABALIN [Concomitant]
  4. CELESTONE [Concomitant]

REACTIONS (3)
  - GRAND MAL CONVULSION [None]
  - TREMOR [None]
  - UNRESPONSIVE TO STIMULI [None]
